FAERS Safety Report 19443236 (Version 1)
Quarter: 2021Q2

REPORT INFORMATION
  Report Type: Spontaneous
  Country: IN (occurrence: IN)
  Receive Date: 20210621
  Receipt Date: 20210621
  Transmission Date: 20210717
  Serious: Yes (Death, Other)
  Sender: FDA-Public Use
  Company Number: IN-PFIZER INC-2020351649

PATIENT
  Age: 74 Year
  Sex: Female

DRUGS (1)
  1. DACOPLICE [Suspect]
     Active Substance: DACOMITINIB
     Dosage: 30 MG ONCE DAILY
     Route: 048
     Dates: start: 20200908

REACTIONS (2)
  - Death [Fatal]
  - Cough [Recovered/Resolved]

NARRATIVE: CASE EVENT DATE: 20200913
